FAERS Safety Report 4566203-0 (Version None)
Quarter: 2005Q1

REPORT INFORMATION
  Report Type: 
  Country: None (occurrence: None)
  Receive Date: 20050110
  Receipt Date: 20050110
  Transmission Date: 20050727
  Serious: Yes (Disabling)
  Sender: FDA-Public Use
  Company Number: None

PATIENT

DRUGS (1)
  1. PAXIL [Suspect]
     Dosage: 20 MG TID

REACTIONS (2)
  - DYSPHASIA [None]
  - NAUSEA [None]
